FAERS Safety Report 7922065-2 (Version None)
Quarter: 2011Q4

REPORT INFORMATION
  Report Type: 
  Country: None (occurrence: None)
  Receive Date: 20111117
  Receipt Date: 20111108
  Transmission Date: 20120403
  Serious: Yes (Other)
  Sender: FDA-Public Use
  Company Number: US-ASTRAZENECA-2011SE41961

PATIENT
  Age: 63 Year
  Sex: Female
  Weight: 91.5 kg

DRUGS (9)
  1. CYMBALTA [Concomitant]
  2. SYNTHROID [Concomitant]
  3. CRESTOR [Suspect]
     Route: 048
  4. MOBIC [Concomitant]
  5. TRAMADOL HCL [Concomitant]
  6. NEXIUM [Suspect]
     Route: 048
  7. MOBIC [Concomitant]
  8. DIOVAN [Concomitant]
     Dosage: 80/12.5 MG ONCE DAILY
  9. TRAMADOL HYDROCHLORIDE [Concomitant]

REACTIONS (5)
  - THYROID CANCER [None]
  - DYSPHONIA [None]
  - DYSPHAGIA [None]
  - DYSPNOEA [None]
  - CONSTIPATION [None]
